FAERS Safety Report 7078753-6 (Version None)
Quarter: 2010Q4

REPORT INFORMATION
  Report Type: 
  Country: None (occurrence: None)
  Receive Date: 20101102
  Receipt Date: 20101025
  Transmission Date: 20110411
  Serious: Yes (Other)
  Sender: FDA-Public Use
  Company Number: DK-PFIZER INC-2010057718

PATIENT
  Age: 50 Year
  Sex: Female

DRUGS (6)
  1. EPIRUBICIN HYDROCHLORIDE [Suspect]
     Indication: BREAST CANCER METASTATIC
     Dosage: 60 MG/M2=97MG, EVERY 3 WEEKS
     Dates: start: 20060711, end: 20061026
  2. FLUOROURACIL [Suspect]
     Indication: BREAST CANCER METASTATIC
     Dosage: 600 MG/M2=978 MG, EVERY 3 WEEKS
     Dates: start: 20060711, end: 20061026
  3. CYCLOPHOSPHAMIDE [Suspect]
     Indication: BREAST CANCER METASTATIC
     Dosage: 600 MG/M2=978 MG, EVERY 3 WEEKS
     Dates: start: 20060711, end: 20061026
  4. PREDNISOLON [Concomitant]
  5. ZOFRAN [Concomitant]
  6. VOGALENE [Concomitant]

REACTIONS (11)
  - APHASIA [None]
  - BILIARY COLIC [None]
  - BREAST CANCER RECURRENT [None]
  - CHOLELITHIASIS [None]
  - CHOLESTASIS [None]
  - DISORIENTATION [None]
  - DISTURBANCE IN ATTENTION [None]
  - HEADACHE [None]
  - LIVER FUNCTION TEST ABNORMAL [None]
  - MEMORY IMPAIRMENT [None]
  - PAIN [None]
